FAERS Safety Report 25830711 (Version 1)
Quarter: 2025Q3

REPORT INFORMATION
  Report Type: Spontaneous
  Country: EU (occurrence: EU)
  Receive Date: 20250922
  Receipt Date: 20250922
  Transmission Date: 20251021
  Serious: Yes (Other)
  Sender: ACCORD
  Company Number: EU-Accord-505432

PATIENT
  Age: 61 Year
  Sex: Male

DRUGS (12)
  1. LEUPROLIDE [Suspect]
     Active Substance: LEUPROLIDE
     Indication: Prostate cancer
     Dosage: 11.25 MG/ML EVERY 3 MONTHS
     Dates: start: 202004
  2. ENZALUTAMIDE [Suspect]
     Active Substance: ENZALUTAMIDE
     Indication: Prostate cancer
     Dates: start: 202110, end: 202410
  3. DENOSUMAB [Concomitant]
     Active Substance: DENOSUMAB
     Indication: Prostate cancer
     Dates: start: 202407
  4. DENOSUMAB [Concomitant]
     Active Substance: DENOSUMAB
     Indication: Prostate cancer stage IV
     Dates: start: 202407
  5. DENOSUMAB [Concomitant]
     Active Substance: DENOSUMAB
     Indication: Metastases to bone
     Dates: start: 202407
  6. DENOSUMAB [Concomitant]
     Active Substance: DENOSUMAB
     Indication: Metastases to lymph nodes
     Dates: start: 202407
  7. ENZALUTAMIDE [Suspect]
     Active Substance: ENZALUTAMIDE
     Indication: Prostate cancer stage IV
     Dates: start: 202110, end: 202410
  8. ENZALUTAMIDE [Suspect]
     Active Substance: ENZALUTAMIDE
     Indication: Metastases to bone
     Dates: start: 202110, end: 202410
  9. ENZALUTAMIDE [Suspect]
     Active Substance: ENZALUTAMIDE
     Indication: Metastases to lymph nodes
     Dates: start: 202110, end: 202410
  10. LEUPROLIDE [Suspect]
     Active Substance: LEUPROLIDE
     Indication: Prostate cancer stage IV
     Dosage: 11.25 MG/ML EVERY 3 MONTHS
     Dates: start: 202004
  11. LEUPROLIDE [Suspect]
     Active Substance: LEUPROLIDE
     Indication: Metastases to bone
     Dosage: 11.25 MG/ML EVERY 3 MONTHS
     Dates: start: 202004
  12. LEUPROLIDE [Suspect]
     Active Substance: LEUPROLIDE
     Indication: Metastases to lymph nodes
     Dosage: 11.25 MG/ML EVERY 3 MONTHS
     Dates: start: 202004

REACTIONS (1)
  - Optic neuropathy [Recovering/Resolving]

NARRATIVE: CASE EVENT DATE: 20230801
